FAERS Safety Report 12242535 (Version 1)
Quarter: 2016Q2

REPORT INFORMATION
  Report Type: Spontaneous
  Country: US (occurrence: None)
  Receive Date: 20160405
  Receipt Date: 20160405
  Transmission Date: 20160815
  Serious: No
  Sender: FDA-Public Use
  Company Number: UNT-2016-003564

PATIENT
  Age: 31 Year
  Sex: Male
  Weight: 68 kg

DRUGS (3)
  1. SILDENAFIL. [Concomitant]
     Active Substance: SILDENAFIL
  2. LETAIRIS [Concomitant]
     Active Substance: AMBRISENTAN
  3. TYVASO [Suspect]
     Active Substance: TREPROSTINIL
     Indication: PULMONARY HYPERTENSION
     Dosage: 18-54 MICROGRAMS, QID, INHALATION
     Route: 055
     Dates: start: 20151104

REACTIONS (4)
  - Incorrect dose administered by device [None]
  - Overdose [None]
  - Dizziness [None]
  - Device issue [None]
